FAERS Safety Report 14753909 (Version 1)
Quarter: 2018Q2

REPORT INFORMATION
  Report Type: Spontaneous
  Country: US (occurrence: US)
  Receive Date: 20180412
  Receipt Date: 20180412
  Transmission Date: 20180711
  Serious: No
  Sender: FDA-Public Use
  Company Number: US-SEBELA IRELAND LIMITED-2017SEB00475

PATIENT

DRUGS (6)
  1. HUMIRA [Suspect]
     Active Substance: ADALIMUMAB
     Route: 058
  2. REMICADE [Suspect]
     Active Substance: INFLIXIMAB
  3. CIMZIA [Suspect]
     Active Substance: CERTOLIZUMAB PEGOL
  4. METHOTREXATE. [Suspect]
     Active Substance: METHOTREXATE
  5. IMURAN [Suspect]
     Active Substance: AZATHIOPRINE
  6. 6-MP [Suspect]
     Active Substance: MERCAPTOPURINE

REACTIONS (1)
  - Drug ineffective [Recovered/Resolved]
